FAERS Safety Report 25775379 (Version 1)
Quarter: 2025Q3

REPORT INFORMATION
  Report Type: Spontaneous
  Country: CN (occurrence: CN)
  Receive Date: 20250909
  Receipt Date: 20250909
  Transmission Date: 20251020
  Serious: Yes (Hospitalization)
  Sender: COHERUS
  Company Number: CN-SHANGHAI JUNSHI BIOSCIENCES CO., LTD.-CN2025015502

PATIENT

DRUGS (2)
  1. TORIPALIMAB [Suspect]
     Active Substance: TORIPALIMAB
     Indication: Renal cancer metastatic
     Route: 065
     Dates: start: 202503, end: 202503
  2. AXITINIB [Suspect]
     Active Substance: AXITINIB
     Indication: Renal cancer metastatic
     Route: 065
     Dates: start: 202503, end: 202503

REACTIONS (4)
  - Infection [Unknown]
  - Abdominal pain [Unknown]
  - Ascites [Unknown]
  - Constipation [Unknown]

NARRATIVE: CASE EVENT DATE: 20250101
